FAERS Safety Report 25218512 (Version 1)
Quarter: 2025Q2

REPORT INFORMATION
  Report Type: Report from Study
  Country: IN (occurrence: IN)
  Receive Date: 20250421
  Receipt Date: 20250421
  Transmission Date: 20250717
  Serious: Yes (Other)
  Sender: ROCHE
  Company Number: IN-002147023-NVSC2025IN062507

PATIENT
  Sex: Male

DRUGS (1)
  1. RANIBIZUMAB [Suspect]
     Active Substance: RANIBIZUMAB
     Indication: Choroidal neovascularisation
     Route: 050
     Dates: start: 20241126

REACTIONS (2)
  - Cataract nuclear [Unknown]
  - Detachment of retinal pigment epithelium [Recovering/Resolving]
